FAERS Safety Report 24137767 (Version 1)
Quarter: 2024Q3

REPORT INFORMATION
  Report Type: Spontaneous
  Country: US (occurrence: US)
  Receive Date: 20240725
  Receipt Date: 20240725
  Transmission Date: 20241017
  Serious: Yes (Other)
  Sender: PERRIGO
  Company Number: US-PERRIGO-24US006763

PATIENT

DRUGS (2)
  1. MINOXIDIL [Suspect]
     Active Substance: MINOXIDIL
     Indication: Alopecia
     Dosage: 0.5 CAPFUL, BID
     Route: 061
     Dates: start: 2020, end: 20240714
  2. MINOXIDIL [Suspect]
     Active Substance: MINOXIDIL
     Indication: Prophylaxis

REACTIONS (6)
  - Chronic kidney disease [Not Recovered/Not Resolved]
  - Condition aggravated [Not Recovered/Not Resolved]
  - Drug ineffective [Unknown]
  - Product administered at inappropriate site [Recovered/Resolved]
  - Product use in unapproved indication [Recovered/Resolved]
  - Incorrect product administration duration [Recovered/Resolved]

NARRATIVE: CASE EVENT DATE: 20200101
